FAERS Safety Report 23980567 (Version 9)
Quarter: 2025Q1

REPORT INFORMATION
  Report Type: Spontaneous
  Country: CA (occurrence: CA)
  Receive Date: 20240617
  Receipt Date: 20250228
  Transmission Date: 20250409
  Serious: Yes (Other)
  Sender: CELLTRION
  Company Number: CA-PFIZER INC-202400191380

PATIENT

DRUGS (3)
  1. INFLECTRA [Suspect]
     Active Substance: INFLIXIMAB-DYYB
     Indication: Crohn^s disease
     Route: 042
     Dates: start: 20240611
  2. INFLECTRA [Suspect]
     Active Substance: INFLIXIMAB-DYYB
     Route: 042
     Dates: start: 20241114
  3. INFLECTRA [Suspect]
     Active Substance: INFLIXIMAB-DYYB
     Route: 042
     Dates: start: 20250109

REACTIONS (26)
  - Choking [Recovered/Resolved]
  - Cough [Recovered/Resolved]
  - Dyspnoea [Recovered/Resolved]
  - Peripheral swelling [Recovered/Resolved]
  - Pruritus [Recovered/Resolved]
  - Dyspnoea [Not Recovered/Not Resolved]
  - Peripheral swelling [Not Recovered/Not Resolved]
  - Urticaria [Recovered/Resolved]
  - Erythema [Recovered/Resolved]
  - Insomnia [Not Recovered/Not Resolved]
  - Swelling face [Recovered/Resolved]
  - Vomiting [Recovered/Resolved]
  - Oedema peripheral [Recovering/Resolving]
  - Limb discomfort [Unknown]
  - Palpitations [Unknown]
  - Malaise [Unknown]
  - Condition aggravated [Unknown]
  - Rash [Recovering/Resolving]
  - Pain in extremity [Recovering/Resolving]
  - Feeling hot [Recovering/Resolving]
  - Influenza like illness [Not Recovered/Not Resolved]
  - Erythema [Not Recovered/Not Resolved]
  - Papule [Not Recovered/Not Resolved]
  - Skin lesion [Not Recovered/Not Resolved]
  - Skin discharge [Not Recovered/Not Resolved]
  - Bloody discharge [Not Recovered/Not Resolved]

NARRATIVE: CASE EVENT DATE: 20240101
